FAERS Safety Report 10333641 (Version 2)
Quarter: 2014Q3

REPORT INFORMATION
  Report Type: Report from Study
  Country: GB (occurrence: GB)
  Receive Date: 20140723
  Receipt Date: 20140813
  Transmission Date: 20150326
  Serious: Yes (Other)
  Sender: FDA-Public Use
  Company Number: GB-ROCHE-1437409

PATIENT
  Sex: Female

DRUGS (1)
  1. HERCEPTIN [Suspect]
     Active Substance: TRASTUZUMAB
     Indication: PRODUCT USED FOR UNKNOWN INDICATION
     Route: 058

REACTIONS (11)
  - Abdominal pain lower [Unknown]
  - Pain [Unknown]
  - Constipation [Unknown]
  - Epistaxis [Recovering/Resolving]
  - Insomnia [Unknown]
  - Vaginal haemorrhage [Unknown]
  - Arthralgia [Recovering/Resolving]
  - Neuropathy peripheral [Unknown]
  - Injection site erythema [Unknown]
  - Asthenia [Unknown]
  - Injection site swelling [Unknown]
